FAERS Safety Report 9431274 (Version 1)
Quarter: 2013Q3

REPORT INFORMATION
  Report Type: Spontaneous
  Country: AU (occurrence: AU)
  Receive Date: 20130730
  Receipt Date: 20130730
  Transmission Date: 20140515
  Serious: Yes (Hospitalization)
  Sender: FDA-Public Use
  Company Number: AU-PFIZER INC-2013217221

PATIENT
  Age: 78 Year
  Sex: Male

DRUGS (1)
  1. REVATIO [Suspect]
     Dosage: 20 MG, 2X/DAY

REACTIONS (1)
  - Cardiac failure [Recovering/Resolving]
